FAERS Safety Report 8439380 (Version 2)
Quarter: 2013Q2

REPORT INFORMATION
  Report Type: Spontaneous
  Country: US (occurrence: None)
  Receive Date: 20120104
  Receipt Date: 20120508
  Transmission Date: 20140414
  Serious: Yes (Other)
  Sender: FDA-Public Use
  Company Number: 2011HGS-002833

PATIENT
  Age: 43 Year
  Sex: Female
  Weight: 106.6 kg

DRUGS (7)
  1. BENLYSTA [Suspect]
     Indication: SYSTEMIC LUPUS ERYTHEMATOSUS
     Dosage: 1 IN 28 D, INTRAVENOUS DRIP
     Route: 041
     Dates: start: 20111104
  2. LEVOTHYROXINE [Concomitant]
  3. PLAQUENIL (HYDROXYCHLOROQUINE SULFATE) / ORAL / TABLET, FILM COATED / 200 MILLIGRAM(S) [Concomitant]
  4. PREDNISONE [Concomitant]
  5. NAPROXEN [Concomitant]
  6. CALCIUM [Concomitant]
  7. CELLCEPT (MYCOPHENOLATE MOFETIL) TABLET [Concomitant]

REACTIONS (4)
  - AGGRESSION [None]
  - ANXIETY [None]
  - AGITATION [None]
  - INJECTION SITE HAEMATOMA [None]
